FAERS Safety Report 6848619-2 (Version None)
Quarter: 2010Q3

REPORT INFORMATION
  Report Type: 
  Country: None (occurrence: None)
  Receive Date: 20100716
  Receipt Date: 20100708
  Transmission Date: 20110219
  Serious: Yes (Hospitalization, Other)
  Sender: FDA-Public Use
  Company Number: GXBR2010US01277

PATIENT
  Sex: Male
  Weight: 86.168 kg

DRUGS (4)
  1. ERGOTAMINE TARTRATE/CAFFEINE TABLETS USP (NGX) [Suspect]
     Indication: CLUSTER HEADACHE
     Dosage: UNK MG, PRN
     Route: 048
  2. ERGOTAMINE [Suspect]
     Indication: CLUSTER HEADACHE
     Route: 042
  3. LITHIUM [Concomitant]
     Indication: CLUSTER HEADACHE
  4. PREDNISONE [Concomitant]
     Indication: CLUSTER HEADACHE

REACTIONS (7)
  - AORTIC ANEURYSM [None]
  - ARTERIAL OCCLUSIVE DISEASE [None]
  - ARTERIAL STENT INSERTION [None]
  - FATIGUE [None]
  - INTERMITTENT CLAUDICATION [None]
  - PERIPHERAL COLDNESS [None]
  - SKIN DISCOLOURATION [None]
